FAERS Safety Report 20899051 (Version 1)
Quarter: 2022Q2

REPORT INFORMATION
  Report Type: Spontaneous
  Country: HR (occurrence: None)
  Receive Date: 20220601
  Receipt Date: 20220601
  Transmission Date: 20220721
  Serious: Yes (Other)
  Sender: FDA-Public Use
  Company Number: HR-ROCHE-3108233

PATIENT
  Sex: Female
  Weight: 50 kg

DRUGS (3)
  1. RIVOTRIL [Suspect]
     Active Substance: CLONAZEPAM
     Indication: Product used for unknown indication
     Dosage: 10 MG, DAILY (ADR IS ADEQUATELY LABELLED: NO) (20 TBL OF 0.5 MG)
     Route: 048
     Dates: start: 20220418, end: 20220418
  2. QUETIAPINE [Suspect]
     Active Substance: QUETIAPINE
     Indication: Product used for unknown indication
     Dosage: 2 G, DAILY (20 TBL OF 100 MG)
     Route: 048
     Dates: start: 20220418, end: 20220418
  3. ZOLOFT [Suspect]
     Active Substance: SERTRALINE HYDROCHLORIDE
     Indication: Product used for unknown indication
     Dosage: 100 MG, DAILY (ADR IS ADEQUATELY LABELLED: NO) (2 TBL OF 50 MG)
     Route: 048
     Dates: start: 20220418, end: 20220418

REACTIONS (3)
  - Suicide attempt [Unknown]
  - Sopor [Recovered/Resolved]
  - Intentional overdose [Unknown]

NARRATIVE: CASE EVENT DATE: 20220418
